FAERS Safety Report 24985704 (Version 2)
Quarter: 2025Q3

REPORT INFORMATION
  Report Type: Spontaneous
  Country: CN (occurrence: CN)
  Receive Date: 20250219
  Receipt Date: 20250816
  Transmission Date: 20251021
  Serious: No
  Sender: ALEXION PHARMACEUTICALS
  Company Number: CN-AstraZeneca-2017SE70360

PATIENT
  Sex: Male
  Weight: 60 kg

DRUGS (1)
  1. ESOMEPRAZOLE MAGNESIUM [Suspect]
     Active Substance: ESOMEPRAZOLE MAGNESIUM
     Indication: Gastritis
     Dosage: 40 MILLIGRAM, QD
     Dates: start: 20161205, end: 20161210

REACTIONS (2)
  - Tinnitus [Recovering/Resolving]
  - Purulent discharge [Recovering/Resolving]
